FAERS Safety Report 6312641-5 (Version None)
Quarter: 2009Q3

REPORT INFORMATION
  Report Type: 
  Country: None (occurrence: None)
  Receive Date: 20090814
  Receipt Date: 20090811
  Transmission Date: 20100115
  Serious: Yes (Other)
  Sender: FDA-Public Use
  Company Number: 1000008126

PATIENT
  Age: 50 Year
  Sex: Female

DRUGS (9)
  1. LEXAPRO [Suspect]
     Indication: DEPRESSION
     Dosage: 5 MG (5 MG, 1 IN 1 D), ORAL
     Route: 048
     Dates: start: 20090711, end: 20090717
  2. LEXAPRO [Suspect]
     Indication: DEPRESSION
     Dosage: 10 MG (10 MG,  1 IN 1 D),ORAL
     Route: 048
     Dates: start: 20090718, end: 20090809
  3. LEXAPRO [Suspect]
     Indication: DEPRESSION
     Dosage: 5 MG (5 MG, 1 IN 1 D), ORAL
     Route: 048
     Dates: start: 20090810
  4. TEGRETOL [Concomitant]
  5. ZONEGRAN [Concomitant]
  6. ALBUTEROL [Concomitant]
  7. ADVAIR HFA [Concomitant]
  8. ELAVIL [Concomitant]
  9. CLARITIN [Concomitant]

REACTIONS (1)
  - CONVULSION [None]
